FAERS Safety Report 6470411-1 (Version None)
Quarter: 2009Q4

REPORT INFORMATION
  Report Type: 
  Country: None (occurrence: None)
  Receive Date: 20091203
  Receipt Date: 20091123
  Transmission Date: 20100525
  Serious: Yes (Other)
  Sender: FDA-Public Use
  Company Number: FR-BRISTOL-MYERS SQUIBB COMPANY-14876528

PATIENT

DRUGS (2)
  1. APROVEL TABS [Suspect]
     Route: 048
  2. INSULIN [Suspect]

REACTIONS (2)
  - HYPERKALAEMIA [None]
  - HYPOGLYCAEMIA [None]
